FAERS Safety Report 5781936-6 (Version None)
Quarter: 2008Q2

REPORT INFORMATION
  Report Type: 
  Country: None (occurrence: None)
  Receive Date: 20080623
  Receipt Date: 20080617
  Transmission Date: 20081010
  Serious: Yes (Death)
  Sender: FDA-Public Use
  Company Number: B0525274A

PATIENT
  Age: 63 Year
  Sex: Female
  Weight: 82 kg

DRUGS (3)
  1. AMOXICILLIN + CLAVULANATE POTASSIUM [Suspect]
     Indication: UPPER RESPIRATORY TRACT INFECTION
  2. CLOZAPINE [Suspect]
     Indication: SCHIZOPHRENIA
  3. AMISULPRIDE [Concomitant]

REACTIONS (3)
  - ANTIPSYCHOTIC DRUG LEVEL INCREASED [None]
  - ARRHYTHMIA [None]
  - DRUG INTERACTION [None]
